FAERS Safety Report 21508053 (Version 1)
Quarter: 2022Q4

REPORT INFORMATION
  Report Type: Spontaneous
  Country: PT (occurrence: PT)
  Receive Date: 20221026
  Receipt Date: 20221026
  Transmission Date: 20230113
  Serious: Yes (Other)
  Sender: FDA-Public Use
  Company Number: None

PATIENT
  Age: 76 Year
  Sex: Male
  Weight: 84 kg

DRUGS (12)
  1. VORICONAZOLE [Suspect]
     Active Substance: VORICONAZOLE
     Indication: Bronchopulmonary aspergillosis
     Dosage: 300 MG 12/12H , UNIT DOSE : 300 MG , FREQUENCY TIME : 12 HOUR , THERAPY END DATE : NASK
     Dates: start: 20220913
  2. BISOPROLOL [Concomitant]
     Active Substance: BISOPROLOL
     Indication: Product used for unknown indication
     Dosage: UNIT DOSE : 2.5 MG
  3. APIXABAN [Concomitant]
     Active Substance: APIXABAN
     Indication: Product used for unknown indication
     Dosage: UNIT DOSE : 5 MG
  4. ATORVASTATIN [Concomitant]
     Active Substance: ATORVASTATIN
     Indication: Product used for unknown indication
     Dosage: UNIT DOSE : 25 MG
  5. ACETAMINOPHEN [Concomitant]
     Active Substance: ACETAMINOPHEN
     Indication: Product used for unknown indication
  6. SPIRONOLACTONE [Concomitant]
     Active Substance: SPIRONOLACTONE
     Indication: Product used for unknown indication
     Dosage: ESPIRONOLACTONA , UNIT DOSE : 25 MG
  7. Clonix [Concomitant]
     Indication: Product used for unknown indication
     Dosage: UNIT DOSE : 300 MG
  8. IPRATROPIUM BROMIDE [Concomitant]
     Active Substance: IPRATROPIUM BROMIDE
     Indication: Product used for unknown indication
     Dosage: BROMETO DE IPRATROPIO , UNIT DOSE : 20 MICROGRAM
  9. ALBUTEROL [Concomitant]
     Active Substance: ALBUTEROL
     Indication: Product used for unknown indication
     Dosage: UNIT DOSE : 100 MICROGRAM
  10. BECLOTAIDE FORTE [Concomitant]
     Indication: Product used for unknown indication
  11. TAMSULOSIN [Concomitant]
     Active Substance: TAMSULOSIN
     Indication: Product used for unknown indication
     Dosage: UNIT DOSE : 0.4 MG
  12. PANTOPRAZOLE [Concomitant]
     Active Substance: PANTOPRAZOLE
     Indication: Product used for unknown indication
     Dosage: UNIT DOSE : 20 MG

REACTIONS (6)
  - Hallucination, visual [Unknown]
  - Fall [Recovered/Resolved]
  - Disorientation [Unknown]
  - Condition aggravated [Unknown]
  - Altered state of consciousness [Unknown]
  - Agitation [Unknown]

NARRATIVE: CASE EVENT DATE: 20220918
